FAERS Safety Report 10259214 (Version 2)
Quarter: 2014Q2

REPORT INFORMATION
  Report Type: Spontaneous
  Country: US (occurrence: US)
  Receive Date: 20140625
  Receipt Date: 20140625
  Transmission Date: 20141212
  Serious: No
  Sender: FDA-Public Use
  Company Number: US-ASTELLAS-2013US013526

PATIENT
  Age: 84 Year
  Sex: Female

DRUGS (6)
  1. VESICARE [Suspect]
     Indication: NOCTURIA
     Route: 048
     Dates: start: 201311
  2. VESICARE [Suspect]
     Route: 048
     Dates: start: 201401
  3. LASIX                              /00032601/ [Concomitant]
     Indication: PRODUCT USED FOR UNKNOWN INDICATION
     Route: 065
  4. COREG [Concomitant]
     Indication: PRODUCT USED FOR UNKNOWN INDICATION
     Route: 065
  5. SIMVASTATIN [Concomitant]
     Indication: PRODUCT USED FOR UNKNOWN INDICATION
     Route: 065
  6. IRON [Concomitant]
     Indication: PRODUCT USED FOR UNKNOWN INDICATION
     Route: 065

REACTIONS (5)
  - Drug ineffective for unapproved indication [Unknown]
  - Diplopia [Unknown]
  - Flatulence [Unknown]
  - Constipation [Unknown]
  - Vision blurred [Unknown]
